FAERS Safety Report 24227273 (Version 2)
Quarter: 2024Q3

REPORT INFORMATION
  Report Type: Spontaneous
  Country: IT (occurrence: IT)
  Receive Date: 20240820
  Receipt Date: 20240829
  Transmission Date: 20241017
  Serious: Yes (Other)
  Sender: PFIZER
  Company Number: IT-MLMSERVICE-20240805-PI152167-00255-2

PATIENT
  Age: 52 Year
  Sex: Female

DRUGS (2)
  1. PACLITAXEL [Suspect]
     Active Substance: PACLITAXEL
     Indication: Ovarian endometrioid carcinoma
     Dosage: (4 CYCLES OUT OF 6, DUE TO THE PATIENT^S INTOLERANCE); 175 MG/M2, INTRAVENOUSLY, EVERY 3 WEEKS
     Route: 042
  2. CARBOPLATIN [Suspect]
     Active Substance: CARBOPLATIN
     Indication: Ovarian endometrioid carcinoma
     Dosage: 4 CYCLES OUT OF 6, DUE TO THE PATIENT^S INTOLERANCE

REACTIONS (4)
  - Neurotoxicity [Unknown]
  - Drug intolerance [Unknown]
  - Off label use [Unknown]
  - Product use issue [Unknown]

NARRATIVE: CASE EVENT DATE: 20210101
